FAERS Safety Report 7153942-0 (Version None)
Quarter: 2010Q4

REPORT INFORMATION
  Report Type: 
  Country: None (occurrence: None)
  Receive Date: 20101213
  Receipt Date: 20101210
  Transmission Date: 20110411
  Serious: Yes (Hospitalization)
  Sender: FDA-Public Use
  Company Number: AT-B.I. PHARMACEUTICALS,INC./RIDGEFIELD-2010-AP-00621AP

PATIENT
  Sex: Female
  Weight: 118 kg

DRUGS (7)
  1. PRADAXA [Suspect]
     Indication: THROMBOSIS PROPHYLAXIS
     Dosage: 220 MG
     Route: 048
     Dates: start: 20100929, end: 20101110
  2. PANTOLOC [Concomitant]
     Indication: PROPHYLAXIS AGAINST GASTROINTESTINAL ULCER
     Dosage: 40 MG
     Route: 048
     Dates: start: 20100928
  3. ATENOLOL [Concomitant]
     Indication: HYPERTENSION
     Dosage: 100 MG
     Route: 048
  4. ALLOPURINOL [Concomitant]
     Indication: PROPHYLAXIS
     Dosage: 100 MG
     Route: 048
  5. NOVALGIN [Concomitant]
     Indication: PAIN PROPHYLAXIS
     Dosage: 3 G
     Route: 048
     Dates: start: 20101001, end: 20101005
  6. NOVALGIN [Concomitant]
     Dosage: 2 G
     Route: 048
     Dates: start: 20101006, end: 20101014
  7. NOVALGIN [Concomitant]
     Dosage: 3 G
     Route: 048
     Dates: start: 20101015, end: 20101028

REACTIONS (1)
  - HEPATIC ENZYME INCREASED [None]
